FAERS Safety Report 7975068-6 (Version None)
Quarter: 2011Q4

REPORT INFORMATION
  Report Type: 
  Country: None (occurrence: None)
  Receive Date: 20111213
  Receipt Date: 20111028
  Transmission Date: 20120403
  Serious: No
  Sender: FDA-Public Use
  Company Number: US-AMGEN-USASP2011056408

PATIENT
  Sex: Female

DRUGS (2)
  1. ENBREL [Suspect]
     Dosage: 50 UNK, QWK
     Route: 063
     Dates: start: 20110923
  2. ENBREL [Suspect]
     Dosage: 50 MG, UNK
     Route: 064
     Dates: end: 20110923

REACTIONS (1)
  - BREAST FEEDING [None]
